FAERS Safety Report 8138893-7 (Version None)
Quarter: 2012Q1

REPORT INFORMATION
  Report Type: 
  Country: None (occurrence: None)
  Receive Date: 20120215
  Receipt Date: 20120209
  Transmission Date: 20120608
  Serious: Yes (Death, Other)
  Sender: FDA-Public Use
  Company Number: FR-ELI_LILLY_AND_COMPANY-FR201202002848

PATIENT
  Sex: Male
  Weight: 60 kg

DRUGS (4)
  1. PEMETREXED [Suspect]
     Indication: NON-SMALL CELL LUNG CANCER
     Dosage: UNK, UNKNOWN
  2. CARBOPLATIN [Concomitant]
     Dosage: UNK, UNKNOWN
  3. AVASTIN [Concomitant]
     Dosage: UNK, UNKNOWN
  4. CISPLATIN [Concomitant]
     Dosage: UNK, UNKNOWN

REACTIONS (3)
  - SUDDEN CARDIAC DEATH [None]
  - FEBRILE BONE MARROW APLASIA [None]
  - MALAISE [None]
